FAERS Safety Report 7620587-5 (Version None)
Quarter: 2011Q3

REPORT INFORMATION
  Report Type: 
  Country: None (occurrence: None)
  Receive Date: 20110719
  Receipt Date: 20110705
  Transmission Date: 20111222
  Serious: Yes (Other)
  Sender: FDA-Public Use
  Company Number: NL-SANOFI-AVENTIS-2011SA044350

PATIENT
  Age: 83 Year
  Sex: Male
  Weight: 90 kg

DRUGS (4)
  1. DRONEDARONE HCL [Suspect]
     Indication: ATRIAL FIBRILLATION
     Route: 048
     Dates: start: 20110517
  2. METOPROLOL TARTRATE [Concomitant]
  3. PERINDOPRIL ERBUMINE [Concomitant]
  4. ACENOCOUMAROL [Concomitant]

REACTIONS (1)
  - CARDIAC FAILURE [None]
